FAERS Safety Report 17975273 (Version 1)
Quarter: 2020Q3

REPORT INFORMATION
  Report Type: Spontaneous
  Country: CA (occurrence: CA)
  Receive Date: 20200702
  Receipt Date: 20200702
  Transmission Date: 20201103
  Serious: Yes (Hospitalization, Other)
  Sender: FDA-Public Use
  Company Number: CA-SA-2020SA165056

PATIENT

DRUGS (7)
  1. MEPOLIZUMAB [Suspect]
     Active Substance: MEPOLIZUMAB
     Indication: ASTHMA
     Dosage: 100 MG
     Route: 042
  2. BUDESONIDE. [Suspect]
     Active Substance: BUDESONIDE
     Indication: ASTHMA
     Dosage: UNK
     Route: 065
  3. FLOVENT [Suspect]
     Active Substance: FLUTICASONE PROPIONATE
     Indication: ASTHMA
     Dosage: UNK
     Route: 065
  4. CICLESONIDE [Suspect]
     Active Substance: CICLESONIDE
     Indication: ASTHMA
     Dosage: UNK UNK, BID
     Route: 065
  5. SALBUTAMOL SULFATE [Suspect]
     Active Substance: ALBUTEROL SULFATE
     Indication: ASTHMA
     Dosage: UNK
     Route: 065
  6. BUDESONIDE/FORMOTEROL FUMARATE [Suspect]
     Active Substance: BUDESONIDE\FORMOTEROL FUMARATE
     Indication: ASTHMA
     Dosage: UNK UNK, BID
     Route: 065
  7. IRBESARTAN. [Suspect]
     Active Substance: IRBESARTAN
     Indication: ASTHMA
     Dosage: UNK UNK, QD
     Route: 065

REACTIONS (3)
  - Therapeutic product effect incomplete [Unknown]
  - Asthma [Unknown]
  - Laboratory test abnormal [Unknown]
